FAERS Safety Report 6920179-7 (Version None)
Quarter: 2010Q3

REPORT INFORMATION
  Report Type: 
  Country: None (occurrence: None)
  Receive Date: 20100811
  Receipt Date: 20100802
  Transmission Date: 20110219
  Serious: Yes (Hospitalization, Other)
  Sender: FDA-Public Use
  Company Number: BR-ABBOTT-10P-020-0661796-00

PATIENT
  Sex: Female
  Weight: 40 kg

DRUGS (7)
  1. HUMIRA [Suspect]
     Indication: RHEUMATOID ARTHRITIS
     Route: 058
  2. TRAMADOL (TRAMAL) + SALINE SOLUTION [Suspect]
     Indication: KNEE OPERATION
     Route: 042
  3. FOLIC ACID [Concomitant]
     Indication: PROPHYLAXIS
     Route: 048
  4. FOLIC ACID [Concomitant]
     Indication: ADVERSE EVENT
  5. METHOTREXATE [Concomitant]
     Indication: RHEUMATOID ARTHRITIS
     Route: 048
  6. CALCIUM W/VITAMIN D [Concomitant]
     Indication: MINERAL SUPPLEMENTATION
     Dosage: 500MG
     Route: 048
  7. PREDNISONE TAB [Concomitant]
     Indication: RHEUMATOID ARTHRITIS
     Route: 048

REACTIONS (5)
  - ARTHRALGIA [None]
  - FEELING HOT [None]
  - INJECTION SITE ERYTHEMA [None]
  - JOINT STIFFNESS [None]
  - OSTEOARTHRITIS [None]
